FAERS Safety Report 14202631 (Version 1)
Quarter: 2017Q4

REPORT INFORMATION
  Report Type: Spontaneous
  Country: US (occurrence: US)
  Receive Date: 20171118
  Receipt Date: 20171118
  Transmission Date: 20180321
  Serious: No
  Sender: FDA-Public Use
  Company Number: US-SHIRE-US201724368

PATIENT
  Sex: Female

DRUGS (1)
  1. XIIDRA [Suspect]
     Active Substance: LIFITEGRAST
     Indication: DRY EYE
     Dosage: UNK
     Route: 047
     Dates: start: 201709, end: 201709

REACTIONS (3)
  - Instillation site reaction [Recovered/Resolved]
  - Instillation site erythema [Recovered/Resolved]
  - Instillation site pruritus [Recovered/Resolved]

NARRATIVE: CASE EVENT DATE: 201709
